FAERS Safety Report 8592421-0 (Version None)
Quarter: 2012Q3

REPORT INFORMATION
  Report Type: 
  Country: None (occurrence: None)
  Receive Date: 20120814
  Receipt Date: 20120806
  Transmission Date: 20120928
  Serious: Yes (Life-Threatening)
  Sender: FDA-Public Use
  Company Number: JP-009507513-2010SP050762

PATIENT

DRUGS (10)
  1. LIDOCAINE HYDROCHLORIDE [Concomitant]
     Indication: HAEMORRHAGE
     Route: 058
     Dates: start: 20100909, end: 20100909
  2. PENTAZOCINE LACTATE [Concomitant]
     Indication: ANALGESIC THERAPY
     Dosage: 30 MG, ONCE
     Route: 042
     Dates: start: 20100909, end: 20100909
  3. VALPROATE SODIUM [Concomitant]
     Indication: CONVULSION
  4. CRIXOFOL [Concomitant]
     Indication: SEDATION
     Dosage: 150 MG, ONCE
     Route: 042
     Dates: start: 20100909, end: 20100909
  5. FLURBIPROFEN [Concomitant]
     Indication: ANALGESIC THERAPY
     Dosage: 50 MG, ONCE
     Route: 042
     Dates: start: 20100909, end: 20100909
  6. TEGRETOL [Concomitant]
     Indication: CONVULSION
  7. SUGAMMADEX SODIUM [Suspect]
     Indication: NEUROMUSCULAR BLOCKADE REVERSAL
     Dosage: 100 MG, ONCE
     Route: 042
     Dates: start: 20100909, end: 20100909
  8. ROCURONIUM BROMIDE [Concomitant]
     Indication: NEUROMUSCULAR BLOCKING THERAPY
     Dosage: 30 MG, ONCE
     Route: 042
     Dates: start: 20100909, end: 20100909
  9. CEFOTIAM HYDROCHLORIDE [Concomitant]
     Indication: INFECTION PROPHYLAXIS
     Dosage: 1 G, ONCE
     Route: 041
     Dates: start: 20100909, end: 20100909
  10. CLOBAZAM [Concomitant]
     Indication: CONVULSION

REACTIONS (5)
  - ANAPHYLACTIC REACTION [None]
  - URTICARIA [None]
  - BLOOD PRESSURE DECREASED [None]
  - OXYGEN SATURATION DECREASED [None]
  - ERYTHEMA [None]
